FAERS Safety Report 20580632 (Version 3)
Quarter: 2022Q3

REPORT INFORMATION
  Report Type: Report from Study
  Country: JP (occurrence: JP)
  Receive Date: 20220311
  Receipt Date: 20220712
  Transmission Date: 20221027
  Serious: Yes (Death, Hospitalization)
  Sender: FDA-Public Use
  Company Number: JP-ABBVIE-19K-087-2877111-00

PATIENT
  Age: 68 Year
  Sex: Female

DRUGS (4)
  1. CARBIDOPA\LEVODOPA [Suspect]
     Active Substance: CARBIDOPA\LEVODOPA
     Indication: Parkinson^s disease
     Dosage: MD: 11 ML, CD: 2.5 ML/HR A 16 HRS, ED: 0 ML/UNIT A- 0
     Route: 050
     Dates: start: 20180126, end: 20220324
  2. CARBIDOPA\LEVODOPA [Suspect]
     Active Substance: CARBIDOPA\LEVODOPA
  3. ROTIGOTINE [Concomitant]
     Active Substance: ROTIGOTINE
     Indication: Parkinson^s disease
     Route: 062
     Dates: end: 20180205
  4. ROTIGOTINE [Concomitant]
     Active Substance: ROTIGOTINE
     Route: 062
     Dates: start: 20180206

REACTIONS (4)
  - Death [Fatal]
  - Mobility decreased [Unknown]
  - Speech disorder [Unknown]
  - Stoma site extravasation [Unknown]

NARRATIVE: CASE EVENT DATE: 20190730
